FAERS Safety Report 18618450 (Version 2)
Quarter: 2020Q4

REPORT INFORMATION
  Report Type: Other
  Country: FR (occurrence: FR)
  Receive Date: 20201215
  Receipt Date: 20201231
  Transmission Date: 20210114
  Serious: Yes (Other)
  Sender: FDA-Public Use
  Company Number: FR-EYEVANCE PHARMACEUTICALS-2020EYE00331

PATIENT
  Age: 96 Year
  Sex: Female

DRUGS (7)
  1. FLUOROMETHOLONE. [Suspect]
     Active Substance: FLUOROMETHOLONE
     Indication: PRODUCT USED FOR UNKNOWN INDICATION
     Dosage: UNK, RIGHT EYE
     Route: 047
     Dates: start: 20201022
  2. SERESTA [Concomitant]
     Active Substance: OXAZEPAM
     Dosage: UNK
  3. MIANSERINE [Concomitant]
     Active Substance: MIANSERIN HYDROCHLORIDE
     Dosage: UNK
  4. COSARTAN [Concomitant]
     Dosage: UNK
  5. LERCANIDIPINE [Concomitant]
     Active Substance: LERCANIDIPINE
     Dosage: UNK
  6. AZOPT [Suspect]
     Active Substance: BRINZOLAMIDE
     Indication: PRODUCT USED FOR UNKNOWN INDICATION
     Dosage: UNK, RIGHT EYE
     Route: 047
     Dates: start: 20201022
  7. CHIBRO-CADRON [Suspect]
     Active Substance: DEXAMETHASONE\NEOMYCIN SULFATE
     Indication: PRODUCT USED FOR UNKNOWN INDICATION
     Dosage: 1 DROP, 2X/DAY IN THE MORNING AND EVENING IN THE LEFT EYE
     Route: 047
     Dates: start: 20201022

REACTIONS (3)
  - Vision blurred [Recovered/Resolved]
  - Hallucination, visual [Recovered/Resolved]
  - Prescribed underdose [Unknown]

NARRATIVE: CASE EVENT DATE: 20201024
